FAERS Safety Report 9214359 (Version 1)
Quarter: 2013Q2

REPORT INFORMATION
  Report Type: Spontaneous
  Country: PH (occurrence: PH)
  Receive Date: 20130405
  Receipt Date: 20130405
  Transmission Date: 20140414
  Serious: Yes (Death, Hospitalization)
  Sender: FDA-Public Use
  Company Number: PH-BAXTER-2013BAX012446

PATIENT
  Sex: Male

DRUGS (4)
  1. DIANEAL PD2 WITH 1.5% DEXTROSE [Suspect]
     Indication: PERITONEAL DIALYSIS
     Route: 033
     Dates: start: 20130312, end: 20130323
  2. DIANEAL PD2 WITH 1.5% DEXTROSE [Suspect]
     Indication: RENAL FAILURE CHRONIC
  3. DIANEAL PD2 WITH 4.25% DEXTROSE [Suspect]
     Indication: PERITONEAL DIALYSIS
     Route: 033
     Dates: start: 20130312, end: 20130323
  4. DIANEAL PD2 WITH 4.25% DEXTROSE [Suspect]
     Indication: RENAL FAILURE CHRONIC

REACTIONS (1)
  - Cerebrovascular accident [Fatal]
